FAERS Safety Report 10750547 (Version 2)
Quarter: 2015Q1

REPORT INFORMATION
  Report Type: Spontaneous
  Country: GB (occurrence: GB)
  Receive Date: 20150130
  Receipt Date: 20150130
  Transmission Date: 20150721
  Serious: Yes (Hospitalization)
  Sender: FDA-Public Use
  Company Number: GB-ACCORD-028243

PATIENT
  Age: 17 Year
  Sex: Female

DRUGS (5)
  1. PARACETAMOL [Concomitant]
     Active Substance: ACETAMINOPHEN
  2. DICLOFENAC [Concomitant]
     Active Substance: DICLOFENAC
  3. DEPO-PROVERA [Concomitant]
     Active Substance: MEDROXYPROGESTERONE ACETATE
  4. IRON [Concomitant]
     Active Substance: IRON
  5. QUETIAPINE [Suspect]
     Active Substance: QUETIAPINE
     Indication: DISSOCIATIVE IDENTITY DISORDER
     Route: 048

REACTIONS (1)
  - Muscular weakness [Recovering/Resolving]

NARRATIVE: CASE EVENT DATE: 20150110
